FAERS Safety Report 6030939-5 (Version None)
Quarter: 2009Q1

REPORT INFORMATION
  Report Type: 
  Country: None (occurrence: None)
  Receive Date: 20090106
  Receipt Date: 20081223
  Transmission Date: 20090719
  Serious: Yes (Hospitalization)
  Sender: FDA-Public Use
  Company Number: GXKR2008JP12238

PATIENT
  Age: 27 Year
  Sex: Female

DRUGS (4)
  1. ALPRAZOLAM [Suspect]
  2. FLUNITRAZEPAM (NGX) (FLUNITRAZEPAM) UNKNOWN [Suspect]
  3. PAROXETINE HCL [Suspect]
  4. ETHYL LOFLAZEPATE (ETHINTL LOFLAZEPATE) [Suspect]

REACTIONS (2)
  - HEPATIC FUNCTION ABNORMAL [None]
  - STEVENS-JOHNSON SYNDROME [None]
